FAERS Safety Report 25087832 (Version 2)
Quarter: 2025Q2

REPORT INFORMATION
  Report Type: Report from Study
  Country: US (occurrence: US)
  Receive Date: 20250318
  Receipt Date: 20250610
  Transmission Date: 20250717
  Serious: Yes (Other)
  Sender: ABBVIE
  Company Number: US-ABBVIE-6176178

PATIENT
  Age: 51 Year
  Sex: Male

DRUGS (2)
  1. RINVOQ [Suspect]
     Active Substance: UPADACITINIB
     Indication: Crohn^s disease
     Route: 048
     Dates: start: 20230928
  2. RINVOQ [Suspect]
     Active Substance: UPADACITINIB
     Indication: Crohn^s disease
     Route: 048
     Dates: start: 20230928

REACTIONS (12)
  - Skin operation [Unknown]
  - Skin tightness [Recovering/Resolving]
  - Tooth fracture [Recovering/Resolving]
  - Tooth extraction [Recovering/Resolving]
  - Unevaluable event [Not Recovered/Not Resolved]
  - Pain [Recovered/Resolved]
  - Toothache [Unknown]
  - Crohn^s disease [Unknown]
  - Stress [Unknown]
  - Skin procedural complication [Recovering/Resolving]
  - Inflammation [Recovering/Resolving]
  - Blood pressure abnormal [Recovering/Resolving]

NARRATIVE: CASE EVENT DATE: 20250101
